FAERS Safety Report 21552440 (Version 1)
Quarter: 2022Q4

REPORT INFORMATION
  Report Type: Spontaneous
  Country: CN (occurrence: CN)
  Receive Date: 20221104
  Receipt Date: 20221104
  Transmission Date: 20230113
  Serious: Yes (Other)
  Sender: FDA-Public Use
  Company Number: CN-JNJFOC-20221055730

PATIENT
  Age: 15 Year
  Sex: Male
  Weight: 65 kg

DRUGS (3)
  1. INVEGA [Suspect]
     Active Substance: PALIPERIDONE
     Indication: Affective disorder
     Dosage: NATIONAL MEDICINE PERMISSION NUMBER J20170010
     Route: 048
     Dates: start: 20220920, end: 20221021
  2. INVEGA [Suspect]
     Active Substance: PALIPERIDONE
     Dosage: 3 MG/NIGHT
     Route: 048
  3. VALPROATE SODIUM [Concomitant]
     Active Substance: VALPROATE SODIUM
     Indication: Affective disorder
     Dosage: NATIONAL MEDICINE PERMISSION NUMBER H20010595
     Dates: start: 20220920, end: 20221021

REACTIONS (2)
  - Suicidal ideation [Recovering/Resolving]
  - Emotional disorder [Recovering/Resolving]

NARRATIVE: CASE EVENT DATE: 20221021
